FAERS Safety Report 6853940-8 (Version None)
Quarter: 2010Q3

REPORT INFORMATION
  Report Type: 
  Country: None (occurrence: None)
  Receive Date: 20100717
  Receipt Date: 20080201
  Transmission Date: 20110219
  Serious: No
  Sender: FDA-Public Use
  Company Number: US-PFIZER INC-2007100285

PATIENT
  Sex: Female
  Weight: 72.7 kg

DRUGS (5)
  1. CHANTIX [Suspect]
     Indication: SMOKING CESSATION THERAPY
     Route: 048
     Dates: start: 20071022
  2. VITAMINS [Concomitant]
  3. ESTROGENS [Concomitant]
     Indication: POSTMENOPAUSE
  4. PROGESTERONE [Concomitant]
     Indication: POSTMENOPAUSE
  5. TESTOSTERONE [Concomitant]
     Indication: POSTMENOPAUSE

REACTIONS (8)
  - ABNORMAL DREAMS [None]
  - ANORGASMIA [None]
  - DRUG INTOLERANCE [None]
  - DRUG PRESCRIBING ERROR [None]
  - FLATULENCE [None]
  - INCORRECT DOSE ADMINISTERED [None]
  - SLEEP DISORDER [None]
  - WRONG TECHNIQUE IN DRUG USAGE PROCESS [None]
